FAERS Safety Report 8780340 (Version 1)
Quarter: 2012Q4

REPORT INFORMATION
  Report Type: Spontaneous
  Country: US (occurrence: None)
  Receive Date: 20120905
  Receipt Date: 20120905
  Transmission Date: 20130627
  Serious: Yes (Other)
  Sender: FDA-Public Use
  Company Number: None

PATIENT
  Sex: Male

DRUGS (1)
  1. MYOZYME [Suspect]
     Route: 042

REACTIONS (6)
  - Lip swelling [None]
  - Auricular swelling [None]
  - Tachycardia [None]
  - Pyrexia [None]
  - Urticaria [None]
  - Infusion related reaction [None]
